FAERS Safety Report 23978495 (Version 1)
Quarter: 2024Q2

REPORT INFORMATION
  Report Type: Spontaneous
  Country: US (occurrence: US)
  Receive Date: 20240614
  Receipt Date: 20240614
  Transmission Date: 20240716
  Serious: Yes (Hospitalization)
  Sender: FDA-Public Use
  Company Number: US-FMCRTG-FMC-2405-000561

PATIENT
  Age: 65 Year
  Sex: Male
  Weight: 90 kg

DRUGS (17)
  1. DELFLEX WITH DEXTROSE 1.5% LOW MAGNESIUM LOW CALCIUM [Suspect]
     Active Substance: CALCIUM CHLORIDE\DEXTROSE\MAGNESIUM CHLORIDE\SODIUM CHLORIDE\SODIUM LACTATE
     Indication: End stage renal disease
     Dosage: 7 TIMES A WEEK, EXCHANGES 5, FILL VOLUME 2200 ML CYC THERAPY VOL 11000 ML, CYC THERAPY TIME 10 HRS,
     Route: 033
  2. DELFLEX WITH DEXTROSE 2.5% LOW MAGNESIUM LOW CALCIUM [Suspect]
     Active Substance: CALCIUM CHLORIDE\DEXTROSE\MAGNESIUM CHLORIDE\SODIUM CHLORIDE\SODIUM LACTATE
     Indication: End stage renal disease
     Dosage: 7 TIMES A WEEK, EXCHANGES 5, FILL VOLUME 2200 ML CYC THERAPY VOL 11000 ML, CYC THERAPY TIME 10 HRS,
     Route: 033
  3. DELFLEX WITH DEXTROSE 4.25% LOW MAGNESIUM LOW CALCIUM [Suspect]
     Active Substance: CALCIUM CHLORIDE\DEXTROSE\MAGNESIUM CHLORIDE\SODIUM CHLORIDE\SODIUM LACTATE
     Indication: End stage renal disease
     Dosage: 7 TIMES A WEEK, EXCHANGES 5, FILL VOLUME 2200 ML CYC THERAPY VOL 11000 ML, CYC THERAPY TIME 10 HRS,
     Route: 033
  4. PANTOPRAZOLE [Concomitant]
     Active Substance: PANTOPRAZOLE
     Dosage: 40 MG ONCE A DAY
  5. AMLODIPINE [Concomitant]
     Active Substance: AMLODIPINE BESYLATE
     Dosage: 5 MG ONCE A DAY
  6. ALBUTEROL SULFATE [Concomitant]
     Active Substance: ALBUTEROL SULFATE
     Dosage: 90 MCG/ACT INHALER, 2 PUFFS EVERY 4 HRS
  7. ENZALUTAMIDE [Concomitant]
     Active Substance: ENZALUTAMIDE
     Dosage: 40MG, 3 TABS ONCE A DAY
  8. LACTULOSE [Concomitant]
     Active Substance: LACTULOSE
  9. METOPROLOL [Concomitant]
     Active Substance: METOPROLOL
     Dosage: 25MG 1/2 TAB EVERY 12 HR
  10. ATORVASTATIN [Concomitant]
     Active Substance: ATORVASTATIN
     Dosage: 40MG EVERY EVENING WITH MEAL
  11. ASPIRIN [Concomitant]
     Active Substance: ASPIRIN
     Dosage: 81 MG ONCE A DAY
  12. SEVELAMER CARBONATE [Concomitant]
     Active Substance: SEVELAMER CARBONATE
     Dosage: 800 MG 2 TAB THREE TIMES A DAY
  13. FOLIC ACID [Concomitant]
     Active Substance: FOLIC ACID
     Dosage: 400 MCG 1 TAB DAILY
  14. GABAPENTIN [Concomitant]
     Active Substance: GABAPENTIN
     Dosage: 100 MG 2 TIMES A DAY
  15. VELPHORO [Concomitant]
     Active Substance: SUCROFERRIC OXYHYDROXIDE
     Dosage: 500 MG CHEW 1 TAB
  16. SUCROFERRIC OXYHYDROXIDE [Concomitant]
     Active Substance: SUCROFERRIC OXYHYDROXIDE
     Dosage: 500 MG TAB 3 TIMES A DAY
  17. CLOPIDOGREL [Concomitant]
     Active Substance: CLOPIDOGREL BISULFATE
     Dosage: 75 MG ONCE A DAY

REACTIONS (1)
  - Hypervolaemia [Recovered/Resolved]

NARRATIVE: CASE EVENT DATE: 20240509
